FAERS Safety Report 12542007 (Version 3)
Quarter: 2016Q3

REPORT INFORMATION
  Report Type: Spontaneous
  Country: US (occurrence: US)
  Receive Date: 20160708
  Receipt Date: 20160718
  Transmission Date: 20161109
  Serious: Yes (Hospitalization)
  Sender: FDA-Public Use
  Company Number: US-TEVA-673284USA

PATIENT
  Age: 48 Year
  Sex: Female

DRUGS (3)
  1. FOLINIC ACID [Suspect]
     Active Substance: LEUCOVORIN
     Indication: ADENOCARCINOMA OF COLON
     Route: 041
  2. FLUOROURACIL. [Suspect]
     Active Substance: FLUOROURACIL
     Indication: ADENOCARCINOMA OF COLON
     Dosage: 2400 MG/M2 INTRAVENOUSLY OVER 48 HOURS EVERY 2 WEEKS
     Route: 041
  3. OXALIPLATIN. [Concomitant]
     Active Substance: OXALIPLATIN
     Indication: ADENOCARCINOMA OF COLON
     Dosage: 85 MG/M2 2 HOURS
     Route: 041

REACTIONS (3)
  - Prinzmetal angina [Recovered/Resolved]
  - Arteriospasm coronary [Recovered/Resolved]
  - Cardiotoxicity [Recovered/Resolved]
